FAERS Safety Report 9191506 (Version 1)
Quarter: 2013Q1

REPORT INFORMATION
  Report Type: Spontaneous
  Country: CA (occurrence: CA)
  Receive Date: 20130326
  Receipt Date: 20130326
  Transmission Date: 20140127
  Serious: Yes (Other)
  Sender: FDA-Public Use
  Company Number: CA-US-EMD SERONO, INC.-7201693

PATIENT
  Sex: Female

DRUGS (2)
  1. REBIF [Suspect]
     Indication: RELAPSING-REMITTING MULTIPLE SCLEROSIS
     Route: 058
     Dates: start: 20110501
  2. REBIF [Suspect]
     Route: 058
     Dates: start: 20090406

REACTIONS (4)
  - Breast cancer [Unknown]
  - Malaise [Unknown]
  - Influenza like illness [Unknown]
  - Injection site reaction [Unknown]
